FAERS Safety Report 6761464-1 (Version None)
Quarter: 2010Q2

REPORT INFORMATION
  Report Type: 
  Country: None (occurrence: None)
  Receive Date: 20100607
  Receipt Date: 20100601
  Transmission Date: 20101027
  Serious: Yes (Life-Threatening)
  Sender: FDA-Public Use
  Company Number: 2010TJ0106FU1

PATIENT
  Sex: Female

DRUGS (2)
  1. TWINJECT 0.3 [Suspect]
     Indication: EMERGENCY CARE
     Dosage: 0.3 MG AS NEEDED
  2. TWINJECT 0.3 [Suspect]
     Indication: HYPERSENSITIVITY
     Dosage: 0.3 MG AS NEEDED

REACTIONS (1)
  - DEVICE MALFUNCTION [None]
